FAERS Safety Report 5570885-4 (Version None)
Quarter: 2007Q4

REPORT INFORMATION
  Report Type: 
  Country: None (occurrence: None)
  Receive Date: 20071221
  Receipt Date: 20071211
  Transmission Date: 20080405
  Serious: Yes (Hospitalization)
  Sender: FDA-Public Use
  Company Number: FR-ASTRAZENECA-2007CG01785

PATIENT
  Age: 76 Year
  Sex: Female

DRUGS (3)
  1. ARIMIDEX [Suspect]
     Indication: BREAST CANCER FEMALE
     Route: 048
     Dates: start: 20070801, end: 20071201
  2. RADIOTHERAPY [Suspect]
     Indication: BREAST CANCER FEMALE
     Dosage: 25 GRAY RECEIVED
     Dates: start: 20070801, end: 20071119
  3. BACTRIM [Concomitant]
     Dates: start: 20071201, end: 20071213

REACTIONS (1)
  - BONE MARROW FAILURE [None]
